FAERS Safety Report 10670881 (Version 2)
Quarter: 2015Q1

REPORT INFORMATION
  Report Type: Spontaneous
  Country: US (occurrence: US)
  Receive Date: 20141223
  Receipt Date: 20150323
  Transmission Date: 20150720
  Serious: Yes (Hospitalization)
  Sender: FDA-Public Use
  Company Number: US-ELI_LILLY_AND_COMPANY-US201412006613

PATIENT
  Sex: Female

DRUGS (4)
  1. FLOLAN [Suspect]
     Active Substance: EPOPROSTENOL SODIUM
     Indication: PULMONARY ARTERIAL HYPERTENSION
     Dosage: 34.8 NG/KG/MIN CONTINUOUS, OTHER
     Route: 042
     Dates: start: 20080401
  2. COUMADIN [Concomitant]
     Active Substance: WARFARIN SODIUM
     Dosage: UNK, UNKNOWN
     Route: 065
  3. ADCIRCA [Suspect]
     Active Substance: TADALAFIL
     Indication: PRODUCT USED FOR UNKNOWN INDICATION
     Dosage: UNK, UNKNOWN
     Route: 065
  4. OPSUMIT [Suspect]
     Active Substance: MACITENTAN
     Indication: PRODUCT USED FOR UNKNOWN INDICATION
     Dosage: UNK, UNKNOWN
     Route: 065

REACTIONS (24)
  - Skin infection [Unknown]
  - Ear infection [Unknown]
  - Migraine [Not Recovered/Not Resolved]
  - Catheter site erythema [Unknown]
  - Fungal infection [Unknown]
  - Perirectal abscess [Unknown]
  - Device related infection [Unknown]
  - Vision blurred [Unknown]
  - Dizziness [Not Recovered/Not Resolved]
  - Sinusitis [Unknown]
  - Catheter site pruritus [Unknown]
  - Gingivitis [Not Recovered/Not Resolved]
  - Erythema [Unknown]
  - Nausea [Unknown]
  - Headache [Not Recovered/Not Resolved]
  - Head discomfort [Not Recovered/Not Resolved]
  - Catheter site discharge [Unknown]
  - Rash erythematous [Unknown]
  - Catheter site swelling [Unknown]
  - Swelling [Unknown]
  - Catheter site inflammation [Unknown]
  - Visual impairment [Not Recovered/Not Resolved]
  - Nasal congestion [Not Recovered/Not Resolved]
  - Catheter site rash [Not Recovered/Not Resolved]
